FAERS Safety Report 6781776-5 (Version None)
Quarter: 2010Q2

REPORT INFORMATION
  Report Type: 
  Country: None (occurrence: None)
  Receive Date: 20100621
  Receipt Date: 20100607
  Transmission Date: 20101027
  Serious: Yes (Hospitalization)
  Sender: FDA-Public Use
  Company Number: BE-ROCHE-707860

PATIENT
  Sex: Male
  Weight: 79 kg

DRUGS (13)
  1. CAPECITABINE [Suspect]
     Dosage: FREQUENCY: EVERY DAY.
     Route: 048
     Dates: start: 20100128
  2. CAPECITABINE [Suspect]
     Dosage: PERMANENTLY DISCONTINUED, DATE OF LAST DOSE PRIOR TO SAE: 27 FEBRUARY 2010, FREQUENCY: ^4 CO 2X 1D^.
     Route: 048
     Dates: end: 20100227
  3. BEVACIZUMAB [Suspect]
     Dosage: FORM: NOT PROVIDED, DATE OF LAST DOSE PRIOR TO SAE: 18 FEBRUARY 2010.
     Route: 042
     Dates: start: 20100128, end: 20100218
  4. OXALIPLATIN [Suspect]
     Dosage: DATE OF LAST DOSE PRIOR TO SAE: 18 FEBRUARY 2010.
     Route: 042
     Dates: start: 20100128, end: 20100218
  5. ARANESP [Concomitant]
     Dates: start: 20091124
  6. IBUPROFEN [Concomitant]
     Dosage: DRUG NAME REPORTED AS: IBUPROFEN E6.
     Dates: start: 20100121, end: 20100125
  7. FORLAX [Concomitant]
     Dates: start: 19800101
  8. DURAGESIC-100 [Concomitant]
     Dates: start: 19800101, end: 20100217
  9. DURAGESIC-100 [Concomitant]
     Dates: start: 20100219
  10. ZOFRAN [Concomitant]
     Dates: start: 20100128, end: 20100218
  11. MAGNESIUM SULFATE [Concomitant]
     Dates: start: 20100128, end: 20100218
  12. CALCIUM-SANDOZ [Concomitant]
     Dates: start: 20100128, end: 20100218
  13. NS [Concomitant]
     Dosage: DRUG NAME REPORTED AS: NS DIRECT.
     Dates: start: 20100218

REACTIONS (1)
  - DRUG TOXICITY [None]
